FAERS Safety Report 16444042 (Version 1)
Quarter: 2019Q2

REPORT INFORMATION
  Report Type: Spontaneous
  Country: US (occurrence: US)
  Receive Date: 20190618
  Receipt Date: 20190618
  Transmission Date: 20190711
  Serious: No
  Sender: FDA-Public Use
  Company Number: US-TEVA-2019-US-1061668

PATIENT
  Sex: Female

DRUGS (1)
  1. CLOTRIMAZOLE AND BETAMETHASON DIPROPIONATE [Suspect]
     Active Substance: BETAMETHASONE\CLOTRIMAZOLE
     Indication: VULVOVAGINAL MYCOTIC INFECTION
     Dosage: CLOTRIMAZOLE 1%/BETAMETHASONE DIPROPIONATE 0.05%
     Dates: start: 20190528, end: 20190531

REACTIONS (4)
  - Product use in unapproved indication [Unknown]
  - Vulvovaginal inflammation [Recovered/Resolved]
  - Product prescribing error [Unknown]
  - Vulvovaginal erythema [Recovered/Resolved]

NARRATIVE: CASE EVENT DATE: 20190531
